FAERS Safety Report 10394719 (Version 1)
Quarter: 2014Q3

REPORT INFORMATION
  Report Type: Spontaneous
  Country: US (occurrence: US)
  Receive Date: 20140820
  Receipt Date: 20140820
  Transmission Date: 20150326
  Serious: No
  Sender: FDA-Public Use
  Company Number: US-009507513-1408USA002270

PATIENT
  Sex: Female

DRUGS (2)
  1. PEGINTRON [Suspect]
     Active Substance: PEGINTERFERON ALFA-2B
     Indication: HEPATITIS
     Dosage: 150/0.5 MICROGRAM, FREQUENCY UNKNOWN
  2. PEGINTRON [Suspect]
     Active Substance: PEGINTERFERON ALFA-2B
     Dosage: 150/0.5 MICROGRAM, FREQUENCY UNKNOWN

REACTIONS (4)
  - Irritability [Unknown]
  - Malaise [Recovered/Resolved]
  - Incorrect product storage [Unknown]
  - Drug dose omission [Unknown]
